FAERS Safety Report 7620471-7 (Version None)
Quarter: 2011Q3

REPORT INFORMATION
  Report Type: 
  Country: None (occurrence: None)
  Receive Date: 20110719
  Receipt Date: 20110712
  Transmission Date: 20111222
  Serious: Yes (Hospitalization, Congenital Anomaly, Other)
  Sender: FDA-Public Use
  Company Number: US-PFIZER INC-2011158652

PATIENT
  Sex: Male
  Weight: 2.7 kg

DRUGS (1)
  1. EFFEXOR XR [Suspect]
     Dosage: 75 MG, UNK
     Route: 064
     Dates: start: 20080321

REACTIONS (13)
  - COARCTATION OF THE AORTA [None]
  - MITRAL VALVE INCOMPETENCE [None]
  - HYPERBILIRUBINAEMIA [None]
  - DILATATION VENTRICULAR [None]
  - SKIN DISCOLOURATION [None]
  - ABO INCOMPATIBILITY [None]
  - MATERNAL EXPOSURE DURING PREGNANCY [None]
  - RESPIRATORY DISTRESS [None]
  - BICUSPID AORTIC VALVE [None]
  - AORTIC VALVE INCOMPETENCE [None]
  - VENTRICULAR HYPERTROPHY [None]
  - TRICUSPID VALVE INCOMPETENCE [None]
  - LEFT ATRIAL DILATATION [None]
